FAERS Safety Report 8100689 (Version 4)
Quarter: 2013Q4

REPORT INFORMATION
  Report Type: Spontaneous
  Country: US (occurrence: US)
  Receive Date: 20110822
  Receipt Date: 20131127
  Transmission Date: 20140711
  Serious: Yes (Hospitalization)
  Sender: FDA-Public Use
  Company Number: US-BAYER-2011-074946

PATIENT
  Age: 22 Year
  Sex: Female
  Weight: 66 kg

DRUGS (5)
  1. YASMIN [Suspect]
     Indication: CONTRACEPTION
     Dosage: UNK
     Dates: start: 2006, end: 2008
  2. MORPHINE [Concomitant]
  3. FLINTSTONES [Concomitant]
  4. MULTIVITAMIN [Concomitant]
  5. PROMETHAZINE [Concomitant]

REACTIONS (4)
  - Gallbladder injury [Unknown]
  - Pain [Unknown]
  - Injury [None]
  - Cholecystitis acute [None]
